FAERS Safety Report 11607627 (Version 1)
Quarter: 2015Q4

REPORT INFORMATION
  Report Type: Spontaneous
  Country: FR (occurrence: FR)
  Receive Date: 20151007
  Receipt Date: 20151007
  Transmission Date: 20160304
  Serious: Yes (Death, Hospitalization, Other)
  Sender: FDA-Public Use
  Company Number: FR-BRISTOL-MYERS SQUIBB COMPANY-BMS-2015-065321

PATIENT
  Age: 68 Year
  Sex: Male

DRUGS (1)
  1. YERVOY [Suspect]
     Active Substance: IPILIMUMAB
     Indication: PROSTATE CANCER METASTATIC
     Dosage: 1040 MG, QD
     Route: 042
     Dates: start: 20150423

REACTIONS (12)
  - Hepatitis cholestatic [Recovering/Resolving]
  - Septic shock [Unknown]
  - Multi-organ failure [Unknown]
  - Atrial fibrillation [Unknown]
  - Shock haemorrhagic [Unknown]
  - Transfusion [Unknown]
  - Disseminated intravascular coagulation [Unknown]
  - Off label use [Unknown]
  - Cardiac arrest [Fatal]
  - Malignant neoplasm progression [Unknown]
  - Peritoneal haemorrhage [Unknown]
  - Explorative laparotomy [Unknown]

NARRATIVE: CASE EVENT DATE: 20150810
